FAERS Safety Report 4784274-3 (Version None)
Quarter: 2005Q3

REPORT INFORMATION
  Report Type: 
  Country: None (occurrence: None)
  Receive Date: 20050928
  Receipt Date: 20050915
  Transmission Date: 20060218
  Serious: Yes (Hospitalization)
  Sender: FDA-Public Use
  Company Number: 217821

PATIENT
  Sex: Female

DRUGS (1)
  1. XOLAIR [Suspect]
     Indication: ASTHMA
     Dates: start: 20030701, end: 20050805

REACTIONS (3)
  - ARTHRALGIA [None]
  - EOSINOPHILIA [None]
  - LUNG INFILTRATION [None]
